FAERS Safety Report 4362378-7 (Version None)
Quarter: 2004Q2

REPORT INFORMATION
  Report Type: 
  Country: None (occurrence: None)
  Receive Date: 20040518
  Receipt Date: 20040504
  Transmission Date: 20050107
  Serious: Yes (Hospitalization)
  Sender: FDA-Public Use
  Company Number: FABR-10565

PATIENT
  Age: 46 Year
  Sex: Male
  Weight: 90.5 kg

DRUGS (8)
  1. FABRAZYME [Suspect]
     Indication: FABRY'S DISEASE
     Dosage: 90 MG Q2WKS IV
     Route: 042
     Dates: start: 20040220
  2. TYLENOL [Concomitant]
  3. ATARAX [Concomitant]
  4. PLAVIX [Concomitant]
  5. LIPITOR [Concomitant]
  6. PROTONIX [Concomitant]
  7. ASPIRIN [Concomitant]
  8. FE [Concomitant]

REACTIONS (10)
  - CHEST PAIN [None]
  - DISEASE RECURRENCE [None]
  - DIZZINESS [None]
  - DYSPEPSIA [None]
  - ELECTROCARDIOGRAM T WAVE INVERSION [None]
  - FLUSHING [None]
  - HYPERHIDROSIS [None]
  - PLEURAL EFFUSION [None]
  - URTICARIA [None]
  - VENTRICULAR EXTRASYSTOLES [None]
